FAERS Safety Report 15560184 (Version 1)
Quarter: 2018Q4

REPORT INFORMATION
  Report Type: Spontaneous
  Country: US (occurrence: US)
  Receive Date: 20181028
  Receipt Date: 20181028
  Transmission Date: 20190205
  Serious: No
  Sender: FDA-Public Use
  Company Number: None

PATIENT
  Age: 75 Year
  Sex: Male
  Weight: 94.5 kg

DRUGS (14)
  1. TAMSULOSIN 0.45 MG CAP ACT [Suspect]
     Active Substance: TAMSULOSIN HYDROCHLORIDE
     Indication: POLLAKIURIA
     Dosage: ?          QUANTITY:1 CAPSULE(S);?
     Route: 048
     Dates: start: 20181024, end: 20181028
  2. CBD OIL [Concomitant]
     Active Substance: CANNABIDIOL\HERBALS
  3. ADVIL [Concomitant]
     Active Substance: IBUPROFEN
  4. NEFAZODONE [Concomitant]
     Active Substance: NEFAZODONE
  5. ALEVE [Concomitant]
     Active Substance: NAPROXEN SODIUM
  6. FISH OIL [Concomitant]
     Active Substance: FISH OIL
  7. POTASSIUM [Concomitant]
     Active Substance: POTASSIUM
  8. OMEPRAZOLE. [Concomitant]
     Active Substance: OMEPRAZOLE
  9. TYLENOL [Concomitant]
     Active Substance: ACETAMINOPHEN
  10. BUPROPION HCL [Concomitant]
     Active Substance: BUPROPION HYDROCHLORIDE
  11. VITAMIN B12 [Concomitant]
     Active Substance: CYANOCOBALAMIN
  12. BAYER ASPIRIN [Concomitant]
     Active Substance: ASPIRIN
  13. PRAVASTATIN. [Concomitant]
     Active Substance: PRAVASTATIN
  14. NITROGLYCERIN. [Concomitant]
     Active Substance: NITROGLYCERIN

REACTIONS (8)
  - Headache [None]
  - Asthenia [None]
  - Rhinorrhoea [None]
  - Dizziness [None]
  - Fatigue [None]
  - Dyspnoea [None]
  - Dyspnoea exertional [None]
  - Diarrhoea [None]

NARRATIVE: CASE EVENT DATE: 20181028
